FAERS Safety Report 14234194 (Version 1)
Quarter: 2017Q4

REPORT INFORMATION
  Report Type: Spontaneous
  Country: CN (occurrence: CN)
  Receive Date: 20171129
  Receipt Date: 20171129
  Transmission Date: 20180321
  Serious: Yes (Death)
  Sender: FDA-Public Use
  Company Number: CN-CIPLA LTD.-2017CN20858

PATIENT

DRUGS (13)
  1. PEMETREXED. [Suspect]
     Active Substance: PEMETREXED
     Dosage: 0.75 MG, UNK
     Route: 065
     Dates: start: 20150507
  2. EVEROLIMUS. [Suspect]
     Active Substance: EVEROLIMUS
     Indication: LUNG ADENOCARCINOMA STAGE III
     Dosage: UNK
     Route: 065
  3. CARBOPLATIN. [Suspect]
     Active Substance: CARBOPLATIN
     Indication: LUNG ADENOCARCINOMA STAGE III
     Dosage: 550 MG, UNK
     Route: 065
     Dates: start: 20150415
  4. CARBOPLATIN. [Suspect]
     Active Substance: CARBOPLATIN
     Dosage: 550 MG, UNK
     Route: 065
     Dates: start: 20150528
  5. PEMETREXED. [Suspect]
     Active Substance: PEMETREXED
     Dosage: 0.75 MG, UNK, MAINTENANCE THERAPY
     Route: 065
     Dates: start: 20150824
  6. NEDAPLATIN [Suspect]
     Active Substance: NEDAPLATIN
     Indication: LUNG ADENOCARCINOMA STAGE III
     Dosage: UNK
     Route: 065
  7. BEVACIZUMAB. [Suspect]
     Active Substance: BEVACIZUMAB
     Dosage: 375 MG, UNK, MAINTENANCE THERAPY
     Route: 065
     Dates: start: 20150824
  8. CARBOPLATIN. [Suspect]
     Active Substance: CARBOPLATIN
     Dosage: 550 MG, UNK
     Route: 065
     Dates: start: 20150507
  9. APATINIB [Suspect]
     Active Substance: APATINIB
     Indication: LUNG ADENOCARCINOMA STAGE III
     Dosage: UNK
     Route: 065
  10. PEMETREXED. [Suspect]
     Active Substance: PEMETREXED
     Indication: LUNG ADENOCARCINOMA STAGE III
     Dosage: 0.75 MG, UNK
     Route: 065
     Dates: start: 20150415
  11. PEMETREXED. [Suspect]
     Active Substance: PEMETREXED
     Dosage: 0.75 MG, UNK
     Route: 065
     Dates: start: 20150528
  12. BEVACIZUMAB. [Suspect]
     Active Substance: BEVACIZUMAB
     Indication: LUNG ADENOCARCINOMA STAGE III
     Dosage: 375 MG, UNK
     Route: 065
     Dates: start: 20150528
  13. CRIZOTINIB [Suspect]
     Active Substance: CRIZOTINIB
     Indication: LUNG ADENOCARCINOMA STAGE III
     Dosage: UNK
     Route: 048
     Dates: start: 20160120

REACTIONS (1)
  - Disease progression [Fatal]
